FAERS Safety Report 4682196-X (Version None)
Quarter: 2005Q2

REPORT INFORMATION
  Report Type: 
  Country: None (occurrence: None)
  Receive Date: 20050602
  Receipt Date: 20040825
  Transmission Date: 20051028
  Serious: Yes (Other)
  Sender: FDA-Public Use
  Company Number: 378593

PATIENT
  Age: 15 Year
  Sex: Female
  Weight: 55.3 kg

DRUGS (1)
  1. LARIAM [Suspect]
     Indication: FOREIGN TRAVEL
     Dosage: 1 DOSE FORM 1 PER 1 WEEK ORAL
     Route: 048
     Dates: start: 20040720, end: 20040821

REACTIONS (1)
  - URTICARIA [None]
